FAERS Safety Report 4589441-X (Version None)
Quarter: 2005Q1

REPORT INFORMATION
  Report Type: 
  Country: None (occurrence: None)
  Receive Date: 20050216
  Receipt Date: 20050210
  Transmission Date: 20050727
  Serious: No
  Sender: FDA-Public Use
  Company Number: 2005UW02349

PATIENT
  Age: 60 Year
  Sex: Female
  Weight: 76.203 kg

DRUGS (2)
  1. PRILOSEC [Suspect]
     Indication: GASTRIC HAEMORRHAGE
     Dates: start: 20000101
  2. PRILOSEC [Suspect]
     Indication: GASTRIC ULCER
     Dates: start: 20000101

REACTIONS (2)
  - GASTRIC HAEMORRHAGE [None]
  - OEDEMA MOUTH [None]
